FAERS Safety Report 11601947 (Version 2)
Quarter: 2015Q4

REPORT INFORMATION
  Report Type: Spontaneous
  Country: US (occurrence: US)
  Receive Date: 20151006
  Receipt Date: 20151008
  Transmission Date: 20160304
  Serious: No
  Sender: FDA-Public Use
  Company Number: US-AMGEN-USASP2015057467

PATIENT
  Sex: Female

DRUGS (1)
  1. PROLIA [Suspect]
     Active Substance: DENOSUMAB
     Indication: PRODUCT USED FOR UNKNOWN INDICATION
     Dosage: UNK
     Route: 065
     Dates: start: 201505

REACTIONS (8)
  - Abdominal discomfort [Unknown]
  - Arthralgia [Unknown]
  - Decreased appetite [Unknown]
  - Tooth disorder [Unknown]
  - Weight decreased [Unknown]
  - Asthenia [Unknown]
  - Tooth infection [Unknown]
  - Pain in extremity [Unknown]
